FAERS Safety Report 8205609-5 (Version None)
Quarter: 2012Q1

REPORT INFORMATION
  Report Type: 
  Country: None (occurrence: None)
  Receive Date: 20120313
  Receipt Date: 20120306
  Transmission Date: 20120608
  Serious: Yes (Death, Hospitalization)
  Sender: FDA-Public Use
  Company Number: DE-ACTELION-A-US2012-60637

PATIENT

DRUGS (3)
  1. REVATIO [Concomitant]
  2. TRACLEER [Concomitant]
     Indication: PULMONARY ARTERIAL HYPERTENSION
     Route: 048
  3. VENTAVIS [Suspect]
     Indication: PULMONARY ARTERIAL HYPERTENSION
     Dosage: 22 UG, OD (FREQUENCY UNKNOWN)
     Route: 055
     Dates: start: 20111103

REACTIONS (3)
  - CARDIAC FAILURE [None]
  - CONVULSION [None]
  - DEATH [None]
